FAERS Safety Report 20727645 (Version 1)
Quarter: 2022Q2

REPORT INFORMATION
  Report Type: Spontaneous
  Country: US (occurrence: None)
  Receive Date: 20220419
  Receipt Date: 20220419
  Transmission Date: 20220721
  Serious: No
  Sender: FDA-Public Use
  Company Number: US-ROCHE-2939214

PATIENT
  Sex: Female

DRUGS (2)
  1. AVASTIN [Suspect]
     Active Substance: BEVACIZUMAB
     Indication: Product used for unknown indication
     Route: 065
  2. ZEJULA [Suspect]
     Active Substance: NIRAPARIB
     Indication: Product used for unknown indication
     Route: 065

REACTIONS (11)
  - Taste disorder [Unknown]
  - Contusion [Unknown]
  - Salivary hypersecretion [Unknown]
  - Dizziness [Unknown]
  - Headache [Unknown]
  - Carbohydrate antigen 125 increased [Unknown]
  - White blood cell count decreased [Unknown]
  - Abdominal neoplasm [Unknown]
  - Haemorrhage [Unknown]
  - Hypertension [Unknown]
  - Oesophageal discomfort [Unknown]
